FAERS Safety Report 6173630-7 (Version None)
Quarter: 2009Q2

REPORT INFORMATION
  Report Type: 
  Country: None (occurrence: None)
  Receive Date: 20090429
  Receipt Date: 20090429
  Transmission Date: 20091009
  Serious: Yes (Hospitalization, Disabling, Other)
  Sender: FDA-Public Use
  Company Number: None

PATIENT
  Age: 69 Year
  Sex: Female
  Weight: 70.7611 kg

DRUGS (2)
  1. FEMARA [Suspect]
     Indication: BREAST CANCER
     Dosage: 1 TABLET EVERY DAY MOUTH
     Route: 048
     Dates: start: 20081229
  2. SANCTURA XR [Suspect]
     Indication: URINARY INCONTINENCE
     Dosage: 1 TABLET EVERY DAY MOUTH
     Route: 048
     Dates: start: 20081229

REACTIONS (2)
  - CEREBROVASCULAR ACCIDENT [None]
  - UNEVALUABLE EVENT [None]
